FAERS Safety Report 7705739-8 (Version None)
Quarter: 2011Q3

REPORT INFORMATION
  Report Type: 
  Country: None (occurrence: None)
  Receive Date: 20110824
  Receipt Date: 20110816
  Transmission Date: 20111222
  Serious: Yes (Hospitalization, Other)
  Sender: FDA-Public Use
  Company Number: US-BAYER-201040785NA

PATIENT
  Age: 23 Year
  Sex: Female
  Weight: 43.991 kg

DRUGS (6)
  1. ASPIRIN [Concomitant]
     Indication: HEART DISEASE CONGENITAL
     Dosage: 81 MG, QD
     Route: 048
     Dates: start: 20000101
  2. YAZ [Suspect]
     Indication: CONTRACEPTION
     Dosage: UNK
     Route: 048
     Dates: start: 20061201, end: 20070401
  3. YAZ [Suspect]
     Indication: ACNE
  4. ENALAPRIL MALEATE [Concomitant]
     Indication: HEART DISEASE CONGENITAL
     Dosage: 5 MG, UNK
     Route: 048
     Dates: start: 20020101, end: 20070101
  5. YAZ [Suspect]
     Indication: PREMENSTRUAL SYNDROME
  6. YAZ [Suspect]
     Indication: MENORRHAGIA

REACTIONS (3)
  - EMBOLIC STROKE [None]
  - MYOCARDIAL INFARCTION [None]
  - TRANSIENT ISCHAEMIC ATTACK [None]
